FAERS Safety Report 7883380-4 (Version None)
Quarter: 2011Q4

REPORT INFORMATION
  Report Type: 
  Country: None (occurrence: None)
  Receive Date: 20111102
  Receipt Date: 20111102
  Transmission Date: 20120403
  Serious: Yes (Other)
  Sender: FDA-Public Use
  Company Number: None

PATIENT
  Age: 34 Year
  Sex: Female
  Weight: 53.977 kg

DRUGS (4)
  1. LAMOTRIGINE [Concomitant]
     Route: 048
  2. TOPIRAMATE [Concomitant]
     Route: 048
  3. DEPLIN -L-METHYLFOLATE [Concomitant]
     Route: 048
  4. YAZ [Suspect]
     Indication: CONTRACEPTION
     Dosage: 1 TABLET
     Route: 048
     Dates: start: 20060401, end: 20110802

REACTIONS (1)
  - DEEP VEIN THROMBOSIS [None]
